FAERS Safety Report 6067050-3 (Version None)
Quarter: 2009Q1

REPORT INFORMATION
  Report Type: 
  Country: None (occurrence: None)
  Receive Date: 20090205
  Receipt Date: 20090127
  Transmission Date: 20090719
  Serious: Yes (Hospitalization, Other)
  Sender: FDA-Public Use
  Company Number: HR-NOVOPROD-279439

PATIENT
  Sex: Female
  Weight: 60 kg

DRUGS (4)
  1. LEVEMIR [Suspect]
     Indication: TYPE 1 DIABETES MELLITUS
     Dosage: 12 U, UNK
  2. LEVEMIR [Suspect]
     Dosage: 18 U, QD
     Route: 058
     Dates: start: 20080710
  3. ACTRAPID [Suspect]
     Indication: TYPE 1 DIABETES MELLITUS
     Dosage: 28 IU, UNK
  4. ACTRAPID [Suspect]
     Dosage: 34 IU, QD
     Route: 058
     Dates: start: 20080710

REACTIONS (2)
  - HELLP SYNDROME [None]
  - PREGNANCY [None]
